FAERS Safety Report 21146829 (Version 1)
Quarter: 2022Q3

REPORT INFORMATION
  Report Type: Spontaneous
  Country: US (occurrence: None)
  Receive Date: 20220728
  Receipt Date: 20220728
  Transmission Date: 20221027
  Serious: Yes (Hospitalization)
  Sender: FDA-Public Use
  Company Number: None

PATIENT
  Age: 50 Year
  Sex: Male
  Weight: 102.9 kg

DRUGS (4)
  1. PAXLOVID [Suspect]
     Active Substance: NIRMATRELVIR\RITONAVIR
     Indication: COVID-19
     Dates: start: 20220625, end: 20220629
  2. ALBUTEROL SULFATE [Concomitant]
     Active Substance: ALBUTEROL SULFATE
     Dates: start: 20220625
  3. DILTIAZEM [Concomitant]
     Active Substance: DILTIAZEM
     Dates: start: 20220422
  4. Silodosin 8 mg [Concomitant]
     Dates: start: 20220214

REACTIONS (11)
  - Petechiae [None]
  - Chromaturia [None]
  - Thirst [None]
  - Ocular icterus [None]
  - Acute kidney injury [None]
  - Normocytic anaemia [None]
  - Transfusion [None]
  - Thrombocytopenia [None]
  - Purpura [None]
  - Thrombotic thrombocytopenic purpura [None]
  - Haemolytic uraemic syndrome [None]

NARRATIVE: CASE EVENT DATE: 20220712
